FAERS Safety Report 9927739 (Version 1)
Quarter: 2014Q1

REPORT INFORMATION
  Report Type: Spontaneous
  Country: US (occurrence: US)
  Receive Date: 20140227
  Receipt Date: 20140227
  Transmission Date: 20141002
  Serious: Yes (Other)
  Sender: FDA-Public Use
  Company Number: US-ALVOGEN-2014AL000243

PATIENT
  Age: 61 Year
  Sex: Female

DRUGS (1)
  1. NAPROXEN [Suspect]
     Indication: RHEUMATOID ARTHRITIS

REACTIONS (1)
  - Corneal perforation [Recovering/Resolving]
